FAERS Safety Report 4908068-0 (Version None)
Quarter: 2006Q1

REPORT INFORMATION
  Report Type: 
  Country: None (occurrence: None)
  Receive Date: 20060113
  Receipt Date: 20050924
  Transmission Date: 20060701
  Serious: No
  Sender: FDA-Public Use
  Company Number: 2005SP003245

PATIENT
  Sex: Female
  Weight: 63.5036 kg

DRUGS (7)
  1. LUNESTA [Suspect]
     Indication: INSOMNIA
     Dosage: 3 MG; HS; ORAL
     Route: 048
     Dates: start: 20050923, end: 20050924
  2. BLOOD PRESSURE [Concomitant]
  3. MEDICATION [Concomitant]
  4. DICLOFENAC [Concomitant]
  5. ANTIINFLAMMATORY [Concomitant]
  6. SINGULAIR [Concomitant]
  7. BUPROPION HCL [Concomitant]

REACTIONS (4)
  - AGEUSIA [None]
  - DIZZINESS [None]
  - DYSGEUSIA [None]
  - FALL [None]
